FAERS Safety Report 14763849 (Version 4)
Quarter: 2022Q4

REPORT INFORMATION
  Report Type: Spontaneous
  Country: CH (occurrence: None)
  Receive Date: 20180416
  Receipt Date: 20221128
  Transmission Date: 20230113
  Serious: Yes (Death)
  Sender: FDA-Public Use
  Company Number: CH-ROCHE-2105374

PATIENT
  Sex: Male
  Weight: 106 kg

DRUGS (1)
  1. ESBRIET [Suspect]
     Active Substance: PIRFENIDONE
     Indication: Idiopathic pulmonary fibrosis
     Route: 048
     Dates: start: 201507, end: 20180407

REACTIONS (2)
  - Cardioplegia [Fatal]
  - Cardiac arrest [Fatal]
